FAERS Safety Report 17073738 (Version 4)
Quarter: 2020Q3

REPORT INFORMATION
  Report Type: Report from Study
  Country: DO (occurrence: DO)
  Receive Date: 20191126
  Receipt Date: 20200828
  Transmission Date: 20201102
  Serious: Yes (Hospitalization, Other)
  Sender: FDA-Public Use
  Company Number: DO-SA-2019SA260423

PATIENT

DRUGS (3)
  1. ALEMTUZUMAB [Suspect]
     Active Substance: ALEMTUZUMAB
     Indication: MULTIPLE SCLEROSIS
     Dosage: UNK
     Route: 041
     Dates: start: 20180327, end: 20180329
  2. ALEMTUZUMAB [Suspect]
     Active Substance: ALEMTUZUMAB
     Dosage: UNK
     Route: 041
     Dates: start: 20170327, end: 20170329
  3. ALEMTUZUMAB [Suspect]
     Active Substance: ALEMTUZUMAB
     Dosage: UNK
     Route: 065

REACTIONS (22)
  - Albumin urine present [Unknown]
  - Pyrexia [Unknown]
  - Cervicitis [Not Recovered/Not Resolved]
  - Monocyte count increased [Recovered/Resolved]
  - Rash [Recovering/Resolving]
  - Cystitis [Recovering/Resolving]
  - Haematuria [Recovering/Resolving]
  - Bacterial test positive [Not Recovered/Not Resolved]
  - Fallopian tube disorder [Not Recovered/Not Resolved]
  - White blood cell count decreased [Recovered/Resolved]
  - Adnexa uteri cyst [Not Recovered/Not Resolved]
  - Neutrophil count increased [Recovered/Resolved]
  - Neutrophil percentage increased [Unknown]
  - Dysuria [Recovering/Resolving]
  - Breast pain [Recovering/Resolving]
  - Herpes zoster [Recovering/Resolving]
  - Lymphocyte percentage decreased [Unknown]
  - Chromaturia [Unknown]
  - Uterine leiomyoma [Not Recovered/Not Resolved]
  - Escherichia infection [Unknown]
  - Urinary tract infection [Recovering/Resolving]
  - White blood cells urine [Unknown]

NARRATIVE: CASE EVENT DATE: 201909
